FAERS Safety Report 7408647-5 (Version None)
Quarter: 2011Q2

REPORT INFORMATION
  Report Type: 
  Country: None (occurrence: None)
  Receive Date: 20110412
  Receipt Date: 20110401
  Transmission Date: 20111010
  Serious: Yes (Other)
  Sender: FDA-Public Use
  Company Number: PHHY2011JP28210

PATIENT

DRUGS (2)
  1. TEGRETOL [Suspect]
     Dosage: UNK UKN, UNK
  2. EBASTINE [Concomitant]
     Dosage: UNK UKN, UNK

REACTIONS (1)
  - CONVULSION [None]
